FAERS Safety Report 13715778 (Version 2)
Quarter: 2017Q3

REPORT INFORMATION
  Report Type: Spontaneous
  Country: US (occurrence: US)
  Receive Date: 20170705
  Receipt Date: 20170714
  Transmission Date: 20171127
  Serious: No
  Sender: FDA-Public Use
  Company Number: US-B.I. PHARMACEUTICALS,INC./RIDGEFIELD-2017-BI-037183

PATIENT
  Age: 80 Year
  Sex: Female

DRUGS (3)
  1. SPIRIVA [Suspect]
     Active Substance: TIOTROPIUM BROMIDE MONOHYDRATE
     Indication: CHRONIC OBSTRUCTIVE PULMONARY DISEASE
     Route: 055
     Dates: start: 201705
  2. FIOROCET [Concomitant]
     Indication: MIGRAINE
     Dosage: TWICE  DAILY;  FORM STRENGTH: 15MG; FORMULATION: TABLET
     Route: 048
  3. TAMAZEPAM [Concomitant]
     Active Substance: TEMAZEPAM
     Indication: INSOMNIA
     Dosage: ONCE DAILY;  FORM STRENGTH: 15MG

REACTIONS (3)
  - Product physical issue [Unknown]
  - Product quality issue [Unknown]
  - Drug ineffective [Not Recovered/Not Resolved]

NARRATIVE: CASE EVENT DATE: 201706
